FAERS Safety Report 11072037 (Version 1)
Quarter: 2015Q2

REPORT INFORMATION
  Report Type: Spontaneous
  Country: GB (occurrence: GB)
  Receive Date: 20150428
  Receipt Date: 20150428
  Transmission Date: 20150821
  Serious: Yes (Disabling, Other)
  Sender: FDA-Public Use
  Company Number: GB-TEVA-557293ACC

PATIENT
  Age: 49 Year
  Sex: Female
  Weight: 68 kg

DRUGS (15)
  1. BUDESONIDE AND FORMOTEROL FUMARATE [Concomitant]
     Dosage: 4 DOSAGE FORMS DAILY; 400MCG/6MCG PER DOSE
     Route: 055
  2. TRAMADOL [Concomitant]
     Active Substance: TRAMADOL
     Dosage: 50 MG, 1 TO 2 FOUR TIMES A DAY(AS REQUIRED)
  3. ATORVASTATIN [Concomitant]
     Active Substance: ATORVASTATIN
     Dosage: 40 MILLIGRAM DAILY; AT BEDTIME
  4. LACTULOSE. [Concomitant]
     Active Substance: LACTULOSE
     Dosage: 10 TO 25 ML, TWICE DAILY
     Route: 048
  5. CITALOPRAM [Concomitant]
     Active Substance: CITALOPRAM HYDROBROMIDE
     Dosage: 20 MG, USE AS DIRECTED
  6. HUMALOG [Concomitant]
     Active Substance: INSULIN LISPRO
     Dosage: 100UNITS/ML, AS DIRECTED
  7. LEVEMIR [Concomitant]
     Active Substance: INSULIN DETEMIR
     Dosage: 100UNITS/ML, USE AS DIRECTED
  8. LAMOTRIGINE. [Suspect]
     Active Substance: LAMOTRIGINE
     Indication: TEMPORAL LOBE EPILEPSY
     Dosage: 400 MILLIGRAM DAILY;
     Route: 048
     Dates: start: 1998
  9. NAPROXEN. [Concomitant]
     Active Substance: NAPROXEN
     Dosage: 1000 MILLIGRAM DAILY;
  10. VENTOLIN [Concomitant]
     Active Substance: ALBUTEROL SULFATE
     Dosage: 1200 MICROGRAM DAILY; IF REQUIRED
     Route: 055
  11. PARACETAMOL [Concomitant]
     Active Substance: ACETAMINOPHEN
     Dosage: 500 MG, TAKE 2 FOUR TIMES A DAY(AS REQUIRED)
  12. OMEPRAZOLE. [Concomitant]
     Active Substance: OMEPRAZOLE
     Dosage: 40 MILLIGRAM DAILY; WHEN REQUIRED
  13. CALCIUM AND COLECALCIFEROL [Concomitant]
     Dosage: 3000 MILLIGRAM DAILY;
  14. ALENDRONIC ACID [Concomitant]
     Active Substance: ALENDRONIC ACID
     Dosage: 70 MG WEEKLY
  15. LOSARTAN [Concomitant]
     Active Substance: LOSARTAN
     Dosage: 50 MILLIGRAM DAILY;

REACTIONS (5)
  - Joint dislocation [Not Recovered/Not Resolved]
  - Foot fracture [Not Recovered/Not Resolved]
  - Radius fracture [Not Recovered/Not Resolved]
  - Fibula fracture [Not Recovered/Not Resolved]
  - Osteopenia [Unknown]

NARRATIVE: CASE EVENT DATE: 20130905
